FAERS Safety Report 23776423 (Version 1)
Quarter: 2024Q2

REPORT INFORMATION
  Report Type: Spontaneous
  Country: US (occurrence: US)
  Receive Date: 20240424
  Receipt Date: 20240424
  Transmission Date: 20240716
  Serious: No
  Sender: FDA-Public Use
  Company Number: US-TEVA-VS-3179394

PATIENT
  Age: 8 Year
  Sex: Male

DRUGS (1)
  1. CEPHALEXIN [Suspect]
     Active Substance: CEPHALEXIN
     Indication: Frostbite
     Route: 065

REACTIONS (4)
  - Incorrect dose administered [Unknown]
  - Product dose omission issue [Unknown]
  - Product storage error [Unknown]
  - Poor quality product administered [Unknown]
